FAERS Safety Report 8275353-7 (Version None)
Quarter: 2012Q2

REPORT INFORMATION
  Report Type: 
  Country: None (occurrence: None)
  Receive Date: 20120411
  Receipt Date: 20120405
  Transmission Date: 20120825
  Serious: No
  Sender: FDA-Public Use
  Company Number: US-PFIZER INC-2012087094

PATIENT
  Sex: Female

DRUGS (2)
  1. LYRICA [Suspect]
     Dosage: 300 MG, FREQUENCY UNKNOWN
  2. LYRICA [Suspect]
     Dosage: 250 MG, FREQUENCY UNKNOWN

REACTIONS (2)
  - HEADACHE [None]
  - VISION BLURRED [None]
